FAERS Safety Report 9766173 (Version 1)
Quarter: 2013Q4

REPORT INFORMATION
  Report Type: Spontaneous
  Country: US (occurrence: US)
  Receive Date: 20131217
  Receipt Date: 20131217
  Transmission Date: 20140711
  Serious: No
  Sender: FDA-Public Use
  Company Number: US-GLAXOSMITHKLINE-A1020838A

PATIENT
  Age: 62 Year
  Sex: Male
  Weight: 91.4 kg

DRUGS (9)
  1. VOTRIENT [Suspect]
     Indication: RENAL CANCER
     Dosage: 800MG PER DAY
     Route: 048
  2. BETA BLOCKER [Suspect]
     Indication: PRODUCT USED FOR UNKNOWN INDICATION
     Route: 065
  3. LEVAQUIN [Concomitant]
  4. MOBIC [Concomitant]
     Route: 048
  5. LYRICA [Concomitant]
  6. PRAVASTATIN [Concomitant]
  7. OXYCONTIN [Concomitant]
  8. OXYCODONE WITH APAP [Concomitant]
  9. FLORINEF [Concomitant]

REACTIONS (13)
  - Impaired healing [Not Recovered/Not Resolved]
  - Blood pressure increased [Not Recovered/Not Resolved]
  - Headache [Recovering/Resolving]
  - Fatigue [Recovering/Resolving]
  - Hair colour changes [Not Recovered/Not Resolved]
  - Dizziness [Recovered/Resolved]
  - Nausea [Recovered/Resolved]
  - Vomiting [Recovered/Resolved]
  - Ageusia [Not Recovered/Not Resolved]
  - Cough [Unknown]
  - Pleurisy [Unknown]
  - Lacrimation increased [Unknown]
  - Skin burning sensation [Unknown]
